FAERS Safety Report 11526606 (Version 1)
Quarter: 2015Q3

REPORT INFORMATION
  Report Type: Spontaneous
  Country: US (occurrence: US)
  Receive Date: 20150903
  Receipt Date: 20150903
  Transmission Date: 20151125
  Serious: No
  Sender: FDA-Public Use
  Company Number: US-ELI_LILLY_AND_COMPANY-US201311005149

PATIENT
  Age: 58 Year
  Sex: Female
  Weight: 60.77 kg

DRUGS (4)
  1. LASIX [Concomitant]
     Active Substance: FUROSEMIDE
  2. CYMBALTA [Suspect]
     Active Substance: DULOXETINE HYDROCHLORIDE
     Indication: FIBROMYALGIA
     Dosage: 60 MG, EACH EVENING
     Route: 048
     Dates: start: 20131105
  3. TRAZODONE [Concomitant]
     Active Substance: TRAZODONE HYDROCHLORIDE
     Dosage: UNK, EACH EVENING
  4. MORPHINE [Concomitant]
     Active Substance: MORPHINE
     Dosage: 60 MG, UNKNOWN

REACTIONS (7)
  - Insomnia [Unknown]
  - Disorientation [Unknown]
  - Hot flush [Unknown]
  - Somnolence [Unknown]
  - Feeling abnormal [Unknown]
  - Dizziness postural [Not Recovered/Not Resolved]
  - Chromatopsia [Unknown]

NARRATIVE: CASE EVENT DATE: 20131108
